FAERS Safety Report 6345576-2 (Version None)
Quarter: 2009Q3

REPORT INFORMATION
  Report Type: 
  Country: None (occurrence: None)
  Receive Date: 20090909
  Receipt Date: 20090827
  Transmission Date: 20100115
  Serious: Yes (Hospitalization, Other)
  Sender: FDA-Public Use
  Company Number: CA-PFIZER INC-2009239308

PATIENT
  Age: 46 Year

DRUGS (4)
  1. CHAMPIX [Suspect]
     Indication: SMOKING CESSATION THERAPY
     Dosage: UNK
     Dates: start: 20090211
  2. ROBAXACET [Suspect]
  3. IBUPROFEN [Concomitant]
  4. RANITIDINE [Concomitant]
     Dosage: 150 MG, 1X/DAY
     Route: 048

REACTIONS (8)
  - DELUSION OF REFERENCE [None]
  - DEPRESSION [None]
  - GASTROOESOPHAGEAL REFLUX DISEASE [None]
  - INTENTIONAL OVERDOSE [None]
  - PARANOIA [None]
  - PERSECUTORY DELUSION [None]
  - PNEUMONIA [None]
  - SUICIDE ATTEMPT [None]
